FAERS Safety Report 4940494-6 (Version None)
Quarter: 2006Q1

REPORT INFORMATION
  Report Type: 
  Country: None (occurrence: None)
  Receive Date: 20060131
  Receipt Date: 20051103
  Transmission Date: 20060701
  Serious: Yes (Other)
  Sender: FDA-Public Use
  Company Number: 200517454US

PATIENT
  Age: 82 Year
  Sex: Male

DRUGS (7)
  1. KETEK [Suspect]
     Indication: PNEUMONIA
     Dates: start: 20050301, end: 20050310
  2. COUMADIN [Suspect]
  3. CALCIUM ACETATE (PHOSLO) [Concomitant]
  4. CARDIZEM [Concomitant]
  5. GLIPIZIDE (GLUCOTROL XL) [Concomitant]
  6. ALBUTEROL [Concomitant]
  7. MAGNESIUM OXIDE (MAG-OX) [Concomitant]

REACTIONS (1)
  - INTERNATIONAL NORMALISED RATIO INCREASED [None]
